FAERS Safety Report 21419701 (Version 1)
Quarter: 2022Q4

REPORT INFORMATION
  Report Type: Report from Study
  Country: US (occurrence: US)
  Receive Date: 20221006
  Receipt Date: 20221006
  Transmission Date: 20230113
  Serious: No
  Sender: FDA-Public Use
  Company Number: US-ABBVIE-4136391

PATIENT
  Sex: Male

DRUGS (7)
  1. RINVOQ [Suspect]
     Active Substance: UPADACITINIB
     Indication: Dermatitis atopic
     Route: 048
     Dates: start: 20220603, end: 2022
  2. RINVOQ [Suspect]
     Active Substance: UPADACITINIB
     Indication: Dermatitis atopic
     Route: 048
     Dates: start: 2022
  3. PROTRIPTYLIN TAB 10MG [Concomitant]
     Indication: Product used for unknown indication
  4. ROPINIROLE TAB 0.5MG [Concomitant]
     Indication: Product used for unknown indication
  5. MODAFINIL TAB 200MG [Concomitant]
     Indication: Product used for unknown indication
  6. KENALOG-40 INJ 40MG/ML [Concomitant]
     Indication: Product used for unknown indication
     Dosage: KENALOG-40 INJ 40MG/ML
  7. TRIAMCINOLON OIN 0.1% [Concomitant]
     Indication: Product used for unknown indication
     Dosage: TRIAMCINOLON OIN 0.1%

REACTIONS (1)
  - Skin abrasion [Recovered/Resolved]

NARRATIVE: CASE EVENT DATE: 20220101
